FAERS Safety Report 20937206 (Version 2)
Quarter: 2022Q2

REPORT INFORMATION
  Report Type: Spontaneous
  Country: GB (occurrence: GB)
  Receive Date: 20220609
  Receipt Date: 20220617
  Transmission Date: 20220721
  Serious: Yes (Other)
  Sender: FDA-Public Use
  Company Number: GB-ADVANZ PHARMA-202206003269

PATIENT

DRUGS (4)
  1. PREDNISOLONE [Suspect]
     Active Substance: PREDNISOLONE
     Indication: VEXAS syndrome
     Dosage: 40 MG
  2. PREDNISOLONE [Suspect]
     Active Substance: PREDNISOLONE
     Dosage: 15 MG
  3. PREDNISOLONE [Suspect]
     Active Substance: PREDNISOLONE
     Dosage: 20 MG (INCREASED)
  4. METHOTREXATE [Suspect]
     Active Substance: METHOTREXATE
     Indication: VEXAS syndrome
     Dosage: 15 MG

REACTIONS (3)
  - VEXAS syndrome [Unknown]
  - Disease progression [Unknown]
  - Therapeutic response decreased [Unknown]
